FAERS Safety Report 6431462-6 (Version None)
Quarter: 2009Q4

REPORT INFORMATION
  Report Type: 
  Country: None (occurrence: None)
  Receive Date: 20091105
  Receipt Date: 20091105
  Transmission Date: 20100525
  Serious: Yes (Hospitalization, Other)
  Sender: FDA-Public Use
  Company Number: None

PATIENT
  Age: 25 Year
  Sex: Female
  Weight: 59.8748 kg

DRUGS (1)
  1. TRI NESSA 285 [Suspect]
     Indication: ACNE
     Dosage: 1 TABLET 1 DAILY ORAL
     Route: 048
     Dates: start: 20010501, end: 20081201

REACTIONS (8)
  - ABDOMINAL PAIN [None]
  - DIARRHOEA [None]
  - DIZZINESS [None]
  - DYSPEPSIA [None]
  - FOOD INTOLERANCE [None]
  - MALNUTRITION [None]
  - PANIC ATTACK [None]
  - SYNCOPE [None]
